FAERS Safety Report 10094049 (Version 1)
Quarter: 2014Q2

REPORT INFORMATION
  Report Type: Spontaneous
  Country: FR (occurrence: FR)
  Receive Date: 20140422
  Receipt Date: 20140422
  Transmission Date: 20141212
  Serious: Yes (Hospitalization)
  Sender: FDA-Public Use
  Company Number: FR-PFIZER INC-2014110315

PATIENT
  Age: 77 Year
  Sex: Female

DRUGS (9)
  1. CORDARONE [Suspect]
     Dosage: 200 MG (1 TABLET), ONCE DAILY
     Route: 048
     Dates: end: 20140224
  2. DOMPERIDONE [Suspect]
     Indication: NAUSEA
     Dosage: UNK, AS NEEDED
     Route: 048
     Dates: end: 20140224
  3. SEROPLEX [Suspect]
     Dosage: 1 DF, ONCE DAILY
     Route: 048
     Dates: end: 20140224
  4. RASILEZ HCT [Suspect]
     Indication: HYPERTENSION
     Dosage: 1 DF, ONCE DAILY
     Route: 048
     Dates: start: 2011, end: 20140224
  5. XARELTO [Concomitant]
  6. LEVOTHYROX [Concomitant]
  7. MODOPAR [Concomitant]
  8. INEXIUM [Concomitant]
  9. VIT K ANTAGONISTS [Concomitant]

REACTIONS (6)
  - Vertigo [Recovered/Resolved]
  - Fall [Recovered/Resolved]
  - Malaise [Recovered/Resolved]
  - Hypokalaemia [Recovered/Resolved]
  - Bradycardia [Recovered/Resolved]
  - Electrocardiogram QT prolonged [Recovered/Resolved]
